FAERS Safety Report 8037652 (Version 2)
Quarter: 2012Q4

REPORT INFORMATION
  Report Type: 
  Country: FR (occurrence: FR)
  Receive Date: 20110715
  Receipt Date: 20120928
  Transmission Date: 20130627
  Serious: Yes (Hospitalization, Other)
  Sender: FDA-Public Use
  Company Number: FR-ELI_LILLY_AND_COMPANY-FR201107002258

PATIENT
  Age: 79 None
  Sex: Female
  Weight: 64 kg

DRUGS (1)
  1. GEMZAR [Suspect]
     Indication: PANCREATIC CARCINOMA METASTATIC
     Dosage: UNK
     Route: 042
     Dates: start: 20110325, end: 20110603

REACTIONS (8)
  - Erythema [Recovered/Resolved]
  - Oedema peripheral [Recovering/Resolving]
  - Paraesthesia [Recovering/Resolving]
  - Skin exfoliation [Recovered/Resolved]
  - Cough [Recovered/Resolved]
  - Rash [Unknown]
  - Erysipelas [Unknown]
  - Pain [Recovering/Resolving]
